FAERS Safety Report 14536469 (Version 3)
Quarter: 2018Q2

REPORT INFORMATION
  Report Type: Spontaneous
  Country: ES (occurrence: ES)
  Receive Date: 20180215
  Receipt Date: 20180417
  Transmission Date: 20180711
  Serious: Yes (Other)
  Sender: FDA-Public Use
  Company Number: ES-SA-2018SA026783

PATIENT
  Sex: Female

DRUGS (20)
  1. DIAZEPAM. [Suspect]
     Active Substance: DIAZEPAM
     Dosage: DOSE 1
     Route: 065
     Dates: start: 20160901
  2. DIAZEPAM. [Suspect]
     Active Substance: DIAZEPAM
     Route: 065
     Dates: start: 20160930, end: 20161021
  3. AMITRIPTYLINE HYDROCHLORIDE. [Suspect]
     Active Substance: AMITRIPTYLINE HYDROCHLORIDE
     Indication: HEADACHE
     Route: 065
     Dates: start: 20161118
  4. AMITRIPTYLINE HYDROCHLORIDE. [Suspect]
     Active Substance: AMITRIPTYLINE HYDROCHLORIDE
     Indication: HEADACHE
     Route: 065
     Dates: start: 20170509, end: 20170516
  5. METOCLOPRAMIDE. [Concomitant]
     Active Substance: METOCLOPRAMIDE
     Dosage: 1 WEEK TREATMENT
     Route: 065
     Dates: start: 20161125
  6. TRAMADOL HYDROCHLORIDE/PARACETAMOL [Suspect]
     Active Substance: ACETAMINOPHEN\TRAMADOL HYDROCHLORIDE
     Dosage: DF = 37.5/325 MG
     Route: 048
     Dates: start: 20161118
  7. PARACETAMOL [Suspect]
     Active Substance: ACETAMINOPHEN
     Route: 065
     Dates: start: 20160901, end: 20161118
  8. SIMVASTATIN. [Suspect]
     Active Substance: SIMVASTATIN
     Dosage: DOSE; 1
     Route: 065
     Dates: start: 20160901, end: 20170420
  9. AMITRIPTYLINE HYDROCHLORIDE. [Suspect]
     Active Substance: AMITRIPTYLINE HYDROCHLORIDE
     Indication: HEADACHE
     Route: 065
     Dates: start: 20170516
  10. OMEPRAZOLE. [Suspect]
     Active Substance: OMEPRAZOLE
     Dosage: DOSE: 1
     Route: 065
     Dates: start: 20160901, end: 20161125
  11. ENALAPRIL/HYDROCHLOROTHIAZIDE [Suspect]
     Active Substance: ENALAPRIL MALEATE\HYDROCHLOROTHIAZIDE
     Dosage: 1 DOSAGE FORMS DAILY; 1 DF = 20/12.5 MG
     Route: 065
     Dates: start: 20160901
  12. AMLODIPINE [Suspect]
     Active Substance: AMLODIPINE BESYLATE
     Route: 065
     Dates: start: 20160901
  13. LORMETAZEPAM [Suspect]
     Active Substance: LORMETAZEPAM
     Route: 065
     Dates: start: 20160901, end: 20160930
  14. SIMVASTATIN. [Suspect]
     Active Substance: SIMVASTATIN
     Dosage: DOSE 1
     Route: 065
     Dates: start: 20170420
  15. DIAZEPAM/SULPIRIDE [Suspect]
     Active Substance: DIAZEPAM\SULPIRIDE
     Dosage: DOSE; 1
     Route: 065
     Dates: start: 20160901
  16. NAPROXEN. [Suspect]
     Active Substance: NAPROXEN
     Route: 065
     Dates: start: 20160901, end: 20161118
  17. GLIBENCLAMIDE [Suspect]
     Active Substance: GLYBURIDE
     Route: 065
     Dates: start: 20160901
  18. TOPIRAMATE. [Suspect]
     Active Substance: TOPIRAMATE
     Dosage: DOSE 1
     Route: 065
     Dates: start: 20170420, end: 20170509
  19. TOPIRAMATE. [Suspect]
     Active Substance: TOPIRAMATE
     Route: 065
     Dates: start: 20170203, end: 20170420
  20. ESCITALOPRAM [Suspect]
     Active Substance: ESCITALOPRAM OXALATE
     Dosage: DOSE; 1
     Route: 065
     Dates: start: 20160901

REACTIONS (9)
  - Fall [Unknown]
  - Treatment noncompliance [Unknown]
  - Pain in extremity [Recovered/Resolved]
  - Insomnia [Recovering/Resolving]
  - Dizziness [Recovering/Resolving]
  - Somnolence [Recovering/Resolving]
  - Drug ineffective [Unknown]
  - Depression [Recovering/Resolving]
  - Headache [Not Recovered/Not Resolved]

NARRATIVE: CASE EVENT DATE: 201610
